FAERS Safety Report 21918326 (Version 1)
Quarter: 2023Q1

REPORT INFORMATION
  Report Type: Spontaneous
  Country: US (occurrence: US)
  Receive Date: 20230127
  Receipt Date: 20230127
  Transmission Date: 20230417
  Serious: Yes (Hospitalization, Other)
  Sender: FDA-Public Use
  Company Number: US-drreddys-LIT/USA/23/0160398

PATIENT
  Age: 76 Year
  Sex: Male

DRUGS (11)
  1. CARVEDILOL [Interacting]
     Active Substance: CARVEDILOL
     Indication: Hypertension
  2. METFORMIN [Suspect]
     Active Substance: METFORMIN HYDROCHLORIDE
     Indication: Diabetes mellitus
  3. AVAPRO [Interacting]
     Active Substance: IRBESARTAN
     Indication: Hypertension
  4. SPIRONOLACTONE [Interacting]
     Active Substance: SPIRONOLACTONE
     Indication: Hypertension
  5. LYRICA [Interacting]
     Active Substance: PREGABALIN
     Indication: Product used for unknown indication
  6. MINOXIDIL [Suspect]
     Active Substance: MINOXIDIL
     Indication: Product used for unknown indication
  7. COTRIMOXAZOLE [Interacting]
     Active Substance: SULFAMETHOXAZOLE\TRIMETHOPRIM
     Indication: Skin ulcer
     Dosage: 7 DAY COURSE
  8. COTRIMOXAZOLE [Interacting]
     Active Substance: SULFAMETHOXAZOLE\TRIMETHOPRIM
     Dosage: 10 DAY COURSE
  9. BACTRIM [Concomitant]
     Active Substance: SULFAMETHOXAZOLE\TRIMETHOPRIM
     Indication: Skin ulcer
     Dosage: 7 DAY COURSE
  10. TYLENOL [Concomitant]
     Active Substance: ACETAMINOPHEN
     Indication: Skin ulcer
  11. CODEINE [Concomitant]
     Active Substance: CODEINE
     Indication: Skin ulcer

REACTIONS (10)
  - Acute coronary syndrome [Recovering/Resolving]
  - Hyperkalaemia [Recovered/Resolved]
  - Myocardial necrosis [Recovering/Resolving]
  - Respiratory failure [Unknown]
  - Condition aggravated [Unknown]
  - Myocardial infarction [Recovering/Resolving]
  - Acute kidney injury [Recovered/Resolved]
  - Myocardial ischaemia [Recovering/Resolving]
  - Drug interaction [Unknown]
  - Agitation [Unknown]
